FAERS Safety Report 10214211 (Version 1)
Quarter: 2014Q2

REPORT INFORMATION
  Report Type: Spontaneous
  Country: US (occurrence: None)
  Receive Date: 20140602
  Receipt Date: 20140602
  Transmission Date: 20141212
  Serious: Yes (Death, Hospitalization)
  Sender: FDA-Public Use
  Company Number: None

PATIENT
  Age: 53 Year
  Sex: Female
  Weight: 45.36 kg

DRUGS (1)
  1. BEVACIZUMAB [Suspect]
     Indication: NEOPLASM
     Dosage: 100-400 ML 3 WEEKS CHEMOTHERA INTO A VEIN
     Route: 042
     Dates: start: 20140106, end: 20140404

REACTIONS (6)
  - Pulmonary necrosis [None]
  - Abdominal pain upper [None]
  - Oesophagitis [None]
  - Fungal infection [None]
  - Bacterial infection [None]
  - Tracheo-oesophageal fistula [None]
